FAERS Safety Report 8495187 (Version 3)
Quarter: 2013Q1

REPORT INFORMATION
  Report Type: Report from Study
  Country: JP (occurrence: JP)
  Receive Date: 20120405
  Receipt Date: 20130304
  Transmission Date: 20140127
  Serious: Yes (Hospitalization)
  Sender: FDA-Public Use
  Company Number: JP-PFIZER INC-2012082463

PATIENT
  Age: 10 Year
  Sex: Female
  Weight: 23.8 kg

DRUGS (16)
  1. TORISEL [Suspect]
     Indication: SYNOVIAL SARCOMA
     Dosage: 25 MG, UNK
     Route: 042
     Dates: start: 20111101, end: 20111101
  2. TORISEL [Suspect]
     Dosage: 25 MG, UNK
     Dates: start: 20111115, end: 20111115
  3. TORISEL [Suspect]
     Dosage: 25 MG, WEEKLY
     Route: 042
     Dates: start: 20120124, end: 20120124
  4. VINORELBINE DITARTRATE [Suspect]
     Indication: SYNOVIAL SARCOMA
     Dosage: 23 MG, 1X/DAY
     Route: 042
     Dates: start: 20111129, end: 20111129
  5. VINORELBINE DITARTRATE [Suspect]
     Dosage: 23 MG, 1X/DAY
     Route: 042
     Dates: start: 20111206
  6. TOPOTECIN [Suspect]
     Indication: SYNOVIAL SARCOMA
     Dosage: 47 MG, 1X/DAY
     Route: 042
     Dates: start: 20111122, end: 20111126
  7. TOPOTECIN [Suspect]
     Dosage: 47 MG, 1X/DAY
     Route: 042
     Dates: start: 20120104
  8. TENODAL [Suspect]
     Indication: SYNOVIAL SARCOMA
     Dosage: 230 MG, 1X/DAY
     Route: 042
     Dates: start: 20111122, end: 20111126
  9. MICAFUNGIN SODIUM [Concomitant]
     Indication: PROPHYLAXIS
     Dosage: UNK
  10. MEROPENEM [Concomitant]
     Indication: ADVERSE EVENT
     Dosage: 0.5 G, 3X/DAY
     Route: 042
     Dates: start: 20111105, end: 20111110
  11. NEUTROGIN [Concomitant]
     Indication: ADVERSE EVENT
     Dosage: 100 UG, 1X/DAY
     Dates: start: 20111107, end: 20111109
  12. LOPEMIN [Concomitant]
     Indication: ADVERSE EVENT
     Dosage: UNK
  13. UROKINASE [Concomitant]
     Indication: PROPHYLAXIS
     Dosage: 6 X 10^4 UNIT/DAY
  14. GLYCYRRHIZIN/GLYCINE/L-CYSTEINE HYDROCHLORIDE [Concomitant]
  15. ATARAX-P [Concomitant]
     Dosage: 20 MG, 1X/DAY
     Route: 042
  16. BACTRAMIN [Concomitant]
     Indication: PROPHYLAXIS
     Dosage: UNK, 3XDAILY
     Route: 048

REACTIONS (4)
  - Bone marrow failure [Recovered/Resolved]
  - Aspartate aminotransferase increased [Recovered/Resolved]
  - Alanine aminotransferase increased [Recovered/Resolved]
  - White blood cell count decreased [Recovered/Resolved]
